FAERS Safety Report 7138532-8 (Version None)
Quarter: 2010Q4

REPORT INFORMATION
  Report Type: 
  Country: None (occurrence: None)
  Receive Date: 20101206
  Receipt Date: 20101124
  Transmission Date: 20110411
  Serious: Yes (Hospitalization, Other)
  Sender: FDA-Public Use
  Company Number: JP-ACTELION-A-CH2007-17205

PATIENT
  Age: 54 Year
  Sex: Female
  Weight: 52 kg

DRUGS (15)
  1. TRACLEER [Suspect]
     Indication: PULMONARY ARTERIAL HYPERTENSION
     Dosage: 65 MG, BID
     Route: 048
     Dates: start: 20051020, end: 20051202
  2. TRACLEER [Suspect]
     Dosage: 31.25 MG, BID
     Route: 048
     Dates: start: 20051203
  3. EPOPROSTENOL SODIUM [Suspect]
  4. WARFARIN POTASSIUM [Concomitant]
  5. BERAPROST SODIUM [Concomitant]
  6. ALENDRONATE SODIUM [Concomitant]
  7. SPIRONOLACTONE [Concomitant]
  8. FUROSEMIDE [Concomitant]
  9. QUINAPRIL HYDROCHLORIDE [Concomitant]
  10. PREDNISOLONE ACETATE [Concomitant]
  11. REBAMIPIDE [Concomitant]
  12. SUCRALFATE [Concomitant]
  13. MAGNESIUM OXIDE [Concomitant]
  14. FLUNITRAZEPAM [Concomitant]
  15. CLOTIAZEPAM [Concomitant]

REACTIONS (4)
  - DEVICE RELATED INFECTION [None]
  - GRANULOCYTOPENIA [None]
  - PNEUMONIA [None]
  - WHITE BLOOD CELL COUNT DECREASED [None]
